FAERS Safety Report 4984839-X (Version None)
Quarter: 2006Q2

REPORT INFORMATION
  Report Type: 
  Country: None (occurrence: None)
  Receive Date: 20060427
  Receipt Date: 20060420
  Transmission Date: 20061013
  Serious: Yes (Hospitalization, Other)
  Sender: FDA-Public Use
  Company Number: US-GILEAD-2006-0009488

PATIENT
  Age: 54 Year
  Sex: Female
  Weight: 59 kg

DRUGS (2)
  1. TRUVADA [Suspect]
     Indication: HIV INFECTION
  2. KALETRA [Concomitant]
     Indication: HIV INFECTION

REACTIONS (4)
  - BLOOD CREATININE INCREASED [None]
  - DRUG ADMINISTRATION ERROR [None]
  - INCORRECT DOSE ADMINISTERED [None]
  - METABOLIC ACIDOSIS [None]
